FAERS Safety Report 8217776-8 (Version None)
Quarter: 2012Q1

REPORT INFORMATION
  Report Type: 
  Country: None (occurrence: None)
  Receive Date: 20120319
  Receipt Date: 20120308
  Transmission Date: 20120608
  Serious: Yes (Other)
  Sender: FDA-Public Use
  Company Number: SE-JNJFOC-20120305416

PATIENT
  Age: 23 Year
  Sex: Female

DRUGS (3)
  1. IMURAN [Suspect]
     Indication: CROHN'S DISEASE
     Dates: start: 20030101, end: 20120201
  2. REMICADE [Suspect]
     Indication: CROHN'S DISEASE
     Route: 042
     Dates: start: 20110202, end: 20111201
  3. PENTASA [Concomitant]

REACTIONS (2)
  - SKIN CANCER [None]
  - BENIGN FEMALE REPRODUCTIVE TRACT NEOPLASM [None]
